FAERS Safety Report 5199254-6 (Version None)
Quarter: 2007Q1

REPORT INFORMATION
  Report Type: 
  Country: None (occurrence: None)
  Receive Date: 20070104
  Receipt Date: 20061213
  Transmission Date: 20070707
  Serious: Yes (Hospitalization)
  Sender: FDA-Public Use
  Company Number: FR-PFIZER INC-2007000080

PATIENT
  Age: 6 Year
  Sex: Female

DRUGS (4)
  1. VIRACEPT [Suspect]
     Route: 048
  2. VIDEX [Suspect]
     Dosage: DAILY DOSE:250MG
     Route: 048
  3. ZERIT [Suspect]
     Route: 048
  4. RETROVIR [Suspect]
     Route: 042

REACTIONS (5)
  - ARTHROPATHY [None]
  - BLOOD LACTATE DEHYDROGENASE INCREASED [None]
  - BLOOD LACTIC ACID INCREASED [None]
  - HYPERTRIGLYCERIDAEMIA [None]
  - NEUROPATHY [None]
